FAERS Safety Report 19066341 (Version 2)
Quarter: 2021Q2

REPORT INFORMATION
  Report Type: Spontaneous
  Country: US (occurrence: US)
  Receive Date: 20210328
  Receipt Date: 20210402
  Transmission Date: 20210717
  Serious: No
  Sender: FDA-Public Use
  Company Number: US-TEVA-2021-US-1893166

PATIENT
  Age: 71 Year
  Sex: Male
  Weight: 40.82 kg

DRUGS (4)
  1. ALBUTEROL SULFATE HFA [Suspect]
     Active Substance: ALBUTEROL SULFATE
     Indication: PNEUMONIA
  2. ALBUTEROL SULFATE HFA [Suspect]
     Active Substance: ALBUTEROL SULFATE
     Indication: DYSPNOEA
     Route: 055
  3. ALBUTEROL SULFATE HFA [Suspect]
     Active Substance: ALBUTEROL SULFATE
     Indication: BRONCHITIS
  4. TESSALON [Concomitant]
     Active Substance: BENZONATATE
     Route: 065

REACTIONS (6)
  - Therapeutic product effect decreased [Unknown]
  - Product use in unapproved indication [Unknown]
  - Pruritus [Unknown]
  - Influenza like illness [Unknown]
  - Viral infection [Unknown]
  - Therapeutic product effect incomplete [Unknown]

NARRATIVE: CASE EVENT DATE: 202102
